FAERS Safety Report 21577737 (Version 6)
Quarter: 2022Q4

REPORT INFORMATION
  Report Type: Spontaneous
  Country: US (occurrence: US)
  Receive Date: 20221110
  Receipt Date: 20221228
  Transmission Date: 20230113
  Serious: No
  Sender: FDA-Public Use
  Company Number: US-PFIZER INC-PV202200099575

PATIENT
  Age: 62 Year
  Sex: Female

DRUGS (8)
  1. IBRANCE [Suspect]
     Active Substance: PALBOCICLIB
     Indication: Breast cancer female
     Dosage: FOR 21 DAYS THEN 7 DAYS OFF
     Route: 048
     Dates: start: 20221026
  2. AMLODIPINE [Concomitant]
     Active Substance: AMLODIPINE BESYLATE
     Dosage: 2.5 MG
  3. ANASTROZOLE [Concomitant]
     Active Substance: ANASTROZOLE
     Dosage: 1 MG
  4. LORAZEPAM [Concomitant]
     Active Substance: LORAZEPAM
     Dosage: 0.5 MG
  5. MOBIC [Concomitant]
     Active Substance: MELOXICAM
     Dosage: 15 MG
  6. OXYCODONE [Concomitant]
     Active Substance: OXYCODONE
     Dosage: 5 MG
  7. PAXIL [Concomitant]
     Active Substance: PAROXETINE HYDROCHLORIDE
     Dosage: 20 MG
  8. PROCHLORPERAZINE [Concomitant]
     Active Substance: PROCHLORPERAZINE
     Dosage: 10 MG

REACTIONS (8)
  - Headache [Not Recovered/Not Resolved]
  - Nausea [Not Recovered/Not Resolved]
  - Skin exfoliation [Not Recovered/Not Resolved]
  - Rash [Not Recovered/Not Resolved]
  - Malaise [Unknown]
  - Urticaria [Unknown]
  - Rash papular [Unknown]
  - Product dose omission issue [Unknown]

NARRATIVE: CASE EVENT DATE: 20220101
